FAERS Safety Report 9110078 (Version 1)
Quarter: 2013Q1

REPORT INFORMATION
  Report Type: Spontaneous
  Country: GB (occurrence: GB)
  Receive Date: 20130222
  Receipt Date: 20130222
  Transmission Date: 20140127
  Serious: Yes (Hospitalization)
  Sender: FDA-Public Use
  Company Number: GB-JNJFOC-20130205885

PATIENT
  Sex: Female

DRUGS (12)
  1. TOPAMAX [Suspect]
     Indication: JAW DISORDER
     Route: 048
  2. TOPAMAX [Suspect]
     Indication: JAW DISORDER
     Route: 048
  3. TOPAMAX [Suspect]
     Indication: JAW DISORDER
     Route: 048
  4. TOPAMAX [Suspect]
     Indication: JAW DISORDER
     Route: 048
  5. TOPAMAX [Suspect]
     Indication: JAW DISORDER
     Route: 048
  6. TOPAMAX [Suspect]
     Indication: JAW DISORDER
     Route: 048
  7. TOPAMAX [Suspect]
     Indication: CANCER PAIN
     Route: 048
  8. TOPAMAX [Suspect]
     Indication: CANCER PAIN
     Route: 048
  9. TOPAMAX [Suspect]
     Indication: CANCER PAIN
     Route: 048
  10. TOPAMAX [Suspect]
     Indication: CANCER PAIN
     Route: 048
  11. TOPAMAX [Suspect]
     Indication: CANCER PAIN
     Route: 048
  12. TOPAMAX [Suspect]
     Indication: CANCER PAIN
     Route: 048

REACTIONS (3)
  - Hospitalisation [Unknown]
  - Prescribed overdose [Unknown]
  - Off label use [Unknown]
